FAERS Safety Report 9014057 (Version 1)
Quarter: 2013Q1

REPORT INFORMATION
  Report Type: Spontaneous
  Country: US (occurrence: US)
  Receive Date: 20130115
  Receipt Date: 20130115
  Transmission Date: 20140127
  Serious: Yes (Death)
  Sender: FDA-Public Use
  Company Number: US-ABBOTT-13P-163-1035630-00

PATIENT
  Age: 85 Year
  Sex: Female
  Weight: 47.22 kg

DRUGS (5)
  1. HUMIRA [Suspect]
     Indication: COLITIS ULCERATIVE
     Dates: start: 20121127, end: 20121226
  2. STEROIDS [Concomitant]
     Indication: PRODUCT USED FOR UNKNOWN INDICATION
  3. PREDNISONE [Concomitant]
     Indication: COLITIS ULCERATIVE
  4. FUROSEMIDE [Concomitant]
     Indication: FLUID RETENTION
  5. DIAZEPAM [Concomitant]
     Indication: ANXIETY

REACTIONS (3)
  - Fall [Fatal]
  - Pneumonia [Fatal]
  - Hip fracture [Fatal]
